FAERS Safety Report 23625955 (Version 1)
Quarter: 2024Q1

REPORT INFORMATION
  Report Type: Spontaneous
  Country: DE (occurrence: DE)
  Receive Date: 20240313
  Receipt Date: 20240313
  Transmission Date: 20240410
  Serious: Yes (Other)
  Sender: FDA-Public Use
  Company Number: DE-OTSUKA-2022_042108

PATIENT
  Age: 14 Month
  Sex: Male

DRUGS (5)
  1. BUSULFAN [Suspect]
     Active Substance: BUSULFAN
     Indication: Autologous haematopoietic stem cell transplant
     Dosage: TARGETED DOSE OF 65,000 NG/H/ML
     Route: 065
  2. CAMPATH [Suspect]
     Active Substance: ALEMTUZUMAB
     Indication: Autologous haematopoietic stem cell transplant
     Dosage: 0.2 MG/KG X 3
     Route: 065
  3. FLUDARABINE [Suspect]
     Active Substance: FLUDARABINE PHOSPHATE
     Indication: Autologous haematopoietic stem cell transplant
     Dosage: 1.2 MG/KG X 6
     Route: 065
  4. CASPOFUNGIN [Concomitant]
     Active Substance: CASPOFUNGIN
     Indication: Product used for unknown indication
     Dosage: UNK
     Route: 065
  5. POSACONAZOLE [Concomitant]
     Active Substance: POSACONAZOLE
     Indication: Product used for unknown indication
     Dosage: UNK
     Route: 048

REACTIONS (1)
  - Neutropenia [Unknown]
